FAERS Safety Report 22158365 (Version 1)
Quarter: 2023Q1

REPORT INFORMATION
  Report Type: Spontaneous
  Country: CH (occurrence: CH)
  Receive Date: 20230331
  Receipt Date: 20230331
  Transmission Date: 20230418
  Serious: Yes (Other)
  Sender: FDA-Public Use
  Company Number: CH-CELLTRION INC.-2023CH005850

PATIENT

DRUGS (1)
  1. INFLIXIMAB [Suspect]
     Active Substance: INFLIXIMAB
     Indication: Crohn^s disease
     Dosage: 120 MG S.C. 2 WEEKLY
     Route: 058
     Dates: start: 20220804

REACTIONS (9)
  - Hepatitis [Recovering/Resolving]
  - Faecal calprotectin increased [Recovering/Resolving]
  - Condition aggravated [Unknown]
  - Diarrhoea [Recovering/Resolving]
  - Fatigue [Recovering/Resolving]
  - Abdominal pain [Recovering/Resolving]
  - Asthenia [Unknown]
  - Off label use [Unknown]
  - Therapy change [Unknown]

NARRATIVE: CASE EVENT DATE: 20221201
